FAERS Safety Report 12315199 (Version 1)
Quarter: 2016Q2

REPORT INFORMATION
  Report Type: Spontaneous
  Country: US (occurrence: US)
  Receive Date: 20160428
  Receipt Date: 20160428
  Transmission Date: 20160815
  Serious: No
  Sender: FDA-Public Use
  Company Number: US-ASTRAZENECA-2016SE30566

PATIENT
  Age: 672 Month
  Sex: Female
  Weight: 77.1 kg

DRUGS (2)
  1. VITAMIN D [Concomitant]
     Active Substance: CHOLECALCIFEROL
  2. ARIMIDEX [Suspect]
     Active Substance: ANASTROZOLE
     Indication: BREAST CANCER
     Route: 048
     Dates: start: 201412

REACTIONS (11)
  - Hair disorder [Unknown]
  - Pain in extremity [Unknown]
  - Vulvovaginal dryness [Unknown]
  - Depressed mood [None]
  - Depressed mood [Unknown]
  - Nail disorder [Unknown]
  - Bone pain [Unknown]
  - Hypoaesthesia [Unknown]
  - Skin disorder [Unknown]
  - Weight increased [Unknown]
  - Musculoskeletal stiffness [Unknown]

NARRATIVE: CASE EVENT DATE: 201512
